FAERS Safety Report 8919925 (Version 1)
Quarter: 2012Q4

REPORT INFORMATION
  Report Type: 
  Country: US (occurrence: US)
  Receive Date: 20121121
  Receipt Date: 20121121
  Transmission Date: 20130627
  Serious: No
  Sender: FDA-Public Use
  Company Number: US-BAYER-2012-120460

PATIENT
  Age: 66 Year
  Sex: Female
  Weight: 45.35 kg

DRUGS (1)
  1. ALEVE CAPLET/TABLET,MIDOL EXTENDED RELIEF CAPLET [Suspect]
     Dosage: 1 DF, BID
     Route: 048
     Dates: start: 20120702

REACTIONS (3)
  - Tooth discolouration [None]
  - Dyspepsia [Recovered/Resolved]
  - Drug ineffective [None]
